FAERS Safety Report 12679641 (Version 2)
Quarter: 2016Q3

REPORT INFORMATION
  Report Type: Spontaneous
  Country: US (occurrence: US)
  Receive Date: 20160824
  Receipt Date: 20160923
  Transmission Date: 20161109
  Serious: No
  Sender: FDA-Public Use
  Company Number: US-PFIZER INC-2016379199

PATIENT
  Age: 52 Year
  Sex: Female

DRUGS (8)
  1. SCHIFF MOVE FREE [Concomitant]
     Active Substance: CHONDROITIN SULFATE A\GLUCOSAMINE
     Dosage: UNK (AFTER NOON)
  2. DUAVEE [Suspect]
     Active Substance: BAZEDOXIFENE ACETATE\ESTROGENS, CONJUGATED
     Indication: HOT FLUSH
     Dosage: 20 MG, 1X/DAY
     Dates: start: 20160625
  3. CENTRUM [Concomitant]
     Active Substance: VITAMINS
     Dosage: UNK (IN MORNING)
  4. BRISDELLE [Concomitant]
     Active Substance: PAROXETINE MESYLATE
     Dosage: UNK (AT BEDTIME)
  5. DUAVEE [Suspect]
     Active Substance: BAZEDOXIFENE ACETATE\ESTROGENS, CONJUGATED
     Indication: NIGHT SWEATS
     Dosage: 1 DF, ALTERNATE DAY
     Dates: start: 20160912
  6. FISH OIL [Concomitant]
     Active Substance: FISH OIL
     Dosage: UNK (AFTER NOON)
  7. OCUVITE [Concomitant]
     Active Substance: VITAMINS
     Dosage: UNK (IN MORNING)
     Route: 047
  8. VIT B COMPLEX [Concomitant]
     Dosage: UNK (IN MORNING)

REACTIONS (4)
  - Abdominal discomfort [Unknown]
  - Vomiting [Unknown]
  - Abdominal pain [Unknown]
  - Constipation [Not Recovered/Not Resolved]

NARRATIVE: CASE EVENT DATE: 20160625
